FAERS Safety Report 18636128 (Version 1)
Quarter: 2020Q4

REPORT INFORMATION
  Report Type: Report from Study
  Country: US (occurrence: US)
  Receive Date: 20201218
  Receipt Date: 20201218
  Transmission Date: 20210114
  Serious: No
  Sender: FDA-Public Use
  Company Number: US-REGENERON PHARMACEUTICALS, INC.-2020-33880

PATIENT

DRUGS (4)
  1. EYLEA [Suspect]
     Active Substance: AFLIBERCEPT
     Dosage: RECEIVED ONE INJECTION TO LEFT EYE
     Dates: start: 202002, end: 202002
  2. EYLEA [Suspect]
     Active Substance: AFLIBERCEPT
     Indication: DIABETIC RETINOPATHY
     Dosage: MONTHLY
     Route: 031
     Dates: start: 2018
  3. EYLEA [Suspect]
     Active Substance: AFLIBERCEPT
     Dosage: EVERY THREE MONTHS
  4. EYLEA [Suspect]
     Active Substance: AFLIBERCEPT
     Dosage: EVERY TWO MONTHS

REACTIONS (6)
  - Vision blurred [Unknown]
  - Eye swelling [Unknown]
  - Pain [Unknown]
  - Product dose omission issue [Unknown]
  - Headache [Unknown]
  - Visual impairment [Unknown]
